FAERS Safety Report 15444659 (Version 5)
Quarter: 2019Q2

REPORT INFORMATION
  Report Type: Spontaneous
  Country: US (occurrence: US)
  Receive Date: 20180928
  Receipt Date: 20190612
  Transmission Date: 20190711
  Serious: Yes (Hospitalization, Other)
  Sender: FDA-Public Use
  Company Number: US-SA-2018SA268718

PATIENT
  Age: 58 Year
  Sex: Female

DRUGS (1)
  1. AUBAGIO [Suspect]
     Active Substance: TERIFLUNOMIDE
     Indication: MULTIPLE SCLEROSIS
     Dosage: 14 MG, QD
     Route: 048
     Dates: start: 20180413

REACTIONS (9)
  - Condition aggravated [Unknown]
  - Dehydration [Unknown]
  - Lower respiratory tract infection [Unknown]
  - Urinary tract infection [Not Recovered/Not Resolved]
  - Confusional state [Unknown]
  - Alopecia [Unknown]
  - Deafness [Unknown]
  - Amnesia [Unknown]
  - Seizure [Not Recovered/Not Resolved]

NARRATIVE: CASE EVENT DATE: 201904
